FAERS Safety Report 22291131 (Version 1)
Quarter: 2023Q2

REPORT INFORMATION
  Report Type: Spontaneous
  Country: US (occurrence: US)
  Receive Date: 20230506
  Receipt Date: 20230506
  Transmission Date: 20230721
  Serious: No
  Sender: FDA-Public Use
  Company Number: US-ViiV Healthcare Limited-95178

PATIENT
  Age: 52 Year
  Sex: Male

DRUGS (2)
  1. RILPIVIRINE [Suspect]
     Active Substance: RILPIVIRINE
     Indication: Product used for unknown indication
     Dosage: UNK UNK, Z(EVERY 2 MONTH DOSING)
     Route: 065
     Dates: start: 20230407
  2. CABOTEGRAVIR [Suspect]
     Active Substance: CABOTEGRAVIR
     Indication: Product used for unknown indication
     Dosage: UNK UNK, Z(EVERY 2 MONTH DOSING)
     Route: 065
     Dates: start: 20230407

REACTIONS (2)
  - Diarrhoea [Recovered/Resolved]
  - Bacterial food poisoning [Recovering/Resolving]

NARRATIVE: CASE EVENT DATE: 20230401
